FAERS Safety Report 6983085-8 (Version None)
Quarter: 2010Q3

REPORT INFORMATION
  Report Type: 
  Country: None (occurrence: None)
  Receive Date: 20100914
  Receipt Date: 20100607
  Transmission Date: 20110219
  Serious: No
  Sender: FDA-Public Use
  Company Number: US-PFIZER INC-2010071346

PATIENT
  Sex: Male
  Weight: 86 kg

DRUGS (3)
  1. LYRICA [Suspect]
     Indication: PAIN IN EXTREMITY
     Dosage: 75 MG, 2X/DAY
     Route: 048
     Dates: start: 20100301
  2. OXYCODONE [Suspect]
     Indication: PAIN IN EXTREMITY
     Dosage: 20 MG, 4X/DAY
     Route: 048
     Dates: start: 20100301
  3. CETIRIZINE HCL AND PSEUDOEPHEDRINE [Concomitant]
     Indication: SEASONAL ALLERGY
     Dosage: UNK
     Route: 048

REACTIONS (2)
  - HYPOAESTHESIA [None]
  - NAUSEA [None]
